FAERS Safety Report 16977461 (Version 4)
Quarter: 2019Q4

REPORT INFORMATION
  Report Type: Spontaneous
  Country: GB (occurrence: GB)
  Receive Date: 20191031
  Receipt Date: 20191230
  Transmission Date: 20200122
  Serious: Yes (Other)
  Sender: FDA-Public Use
  Company Number: GB-009507513-1910GBR013153

PATIENT
  Sex: Female

DRUGS (1)
  1. SIMVASTATIN. [Suspect]
     Active Substance: SIMVASTATIN
     Indication: PRODUCT USED FOR UNKNOWN INDICATION
     Dosage: 40 MILLIGRAM Q2W
     Route: 048

REACTIONS (4)
  - Psychomotor hyperactivity [Recovering/Resolving]
  - Sleep disorder [Recovering/Resolving]
  - Hallucination, visual [Recovering/Resolving]
  - Agitation [Recovering/Resolving]
